FAERS Safety Report 16806504 (Version 2)
Quarter: 2019Q4

REPORT INFORMATION
  Report Type: Spontaneous
  Country: NL (occurrence: NL)
  Receive Date: 20190913
  Receipt Date: 20191004
  Transmission Date: 20200122
  Serious: Yes (Other)
  Sender: FDA-Public Use
  Company Number: NL-MYLANLABS-2019M1084866

PATIENT
  Age: 70 Year
  Sex: Male
  Weight: 138 kg

DRUGS (6)
  1. COLCHICINE. [Concomitant]
     Active Substance: COLCHICINE
     Indication: GOUT
     Dosage: UNK
     Route: 065
  2. BENZBROMARONE [Suspect]
     Active Substance: BENZBROMARONE
     Indication: GOUTY TOPHUS
     Dosage: UNK
  3. FEBUXOSTAT. [Suspect]
     Active Substance: FEBUXOSTAT
     Indication: GOUT
     Dosage: 40 MG, QD
     Route: 065
  4. FEBUXOSTAT. [Suspect]
     Active Substance: FEBUXOSTAT
     Indication: GOUTY TOPHUS
     Dosage: 80 MILLIGRAM, QD
     Route: 065
  5. ALLOPURINOL. [Suspect]
     Active Substance: ALLOPURINOL
     Indication: GOUT
     Dosage: UNK
     Route: 065
  6. BENZBROMARONE [Suspect]
     Active Substance: BENZBROMARONE
     Indication: GOUT
     Dosage: 100 MG, UNK
     Route: 065

REACTIONS (5)
  - Drug ineffective [Unknown]
  - Skin disorder [Unknown]
  - Feeling abnormal [Recovered/Resolved]
  - Abdominal discomfort [Recovered/Resolved]
  - Polyneuropathy [Unknown]
